FAERS Safety Report 8572328-5 (Version None)
Quarter: 2012Q3

REPORT INFORMATION
  Report Type: 
  Country: None (occurrence: None)
  Receive Date: 20120806
  Receipt Date: 20091008
  Transmission Date: 20120928
  Serious: Yes (Other)
  Sender: FDA-Public Use
  Company Number: CO-PFIZER INC-2012189077

PATIENT
  Age: 66 Year
  Sex: Female

DRUGS (4)
  1. FUROSEMIDE [Concomitant]
     Dosage: 40 MG, 1X/DAY
  2. LIPITOR [Suspect]
     Dosage: 10 MG, 1X/DAY
  3. LOSARTAN [Concomitant]
     Dosage: 50 MG, 2X/DAY
  4. METOPROLOL TARTRATE [Concomitant]
     Dosage: 50 MG, 2X/DAY

REACTIONS (1)
  - ANGINA UNSTABLE [None]
